FAERS Safety Report 25483617 (Version 1)
Quarter: 2025Q2

REPORT INFORMATION
  Report Type: Spontaneous
  Country: AU (occurrence: AU)
  Receive Date: 20250626
  Receipt Date: 20250626
  Transmission Date: 20250716
  Serious: Yes (Other)
  Sender: GALPHARM INTERNATIONAL
  Company Number: AU-PERRIGO-25AU007878

PATIENT
  Sex: Female
  Weight: 71 kg

DRUGS (1)
  1. NICOTINE [Suspect]
     Active Substance: NICOTINE
     Indication: Smoking cessation therapy
     Route: 065

REACTIONS (3)
  - Dependence [Unknown]
  - Eye disorder [Unknown]
  - Nausea [Unknown]
